FAERS Safety Report 10252618 (Version 1)
Quarter: 2014Q2

REPORT INFORMATION
  Report Type: Spontaneous
  Country: US (occurrence: US)
  Receive Date: 20140623
  Receipt Date: 20140623
  Transmission Date: 20141212
  Serious: Yes (Other)
  Sender: FDA-Public Use
  Company Number: US-PFIZER INC-2014167691

PATIENT
  Age: 81 Year
  Sex: Female
  Weight: 58.5 kg

DRUGS (3)
  1. DILANTIN [Suspect]
     Indication: EPILEPSY
     Dosage: 100 MG, 2X/DAY
     Route: 048
  2. LIPITOR [Concomitant]
     Dosage: 80 MG, 1X/DAY
  3. TOPROL XL [Concomitant]
     Indication: HYPERTENSION
     Dosage: 25 MG, UNK

REACTIONS (2)
  - Lymphadenopathy [Unknown]
  - Benign neoplasm of thyroid gland [Unknown]
